FAERS Safety Report 20744514 (Version 1)
Quarter: 2022Q2

REPORT INFORMATION
  Report Type: Spontaneous
  Country: None (occurrence: US)
  Receive Date: 20220425
  Receipt Date: 20220425
  Transmission Date: 20220721
  Serious: Yes (Death, Congenital Anomaly)
  Sender: FDA-Public Use
  Company Number: US-BIOLOGICAL E. LTD-2128113

PATIENT
  Age: 50 Year
  Sex: Male
  Weight: 106.82 kg

DRUGS (4)
  1. DAPTOMYCIN [Suspect]
     Active Substance: DAPTOMYCIN
     Indication: Product used for unknown indication
     Route: 065
  2. REMODULIN [Concomitant]
     Active Substance: TREPROSTINIL
     Route: 042
  3. XARELTO [Concomitant]
     Active Substance: RIVAROXABAN
     Route: 065
  4. TREPROSTINIL [Concomitant]
     Active Substance: TREPROSTINIL
     Route: 042

REACTIONS (3)
  - Condition aggravated [Unknown]
  - Drug hypersensitivity [Unknown]
  - Death [Fatal]

NARRATIVE: CASE EVENT DATE: 20220322
